FAERS Safety Report 6520981-X (Version None)
Quarter: 2009Q4

REPORT INFORMATION
  Report Type: 
  Country: None (occurrence: None)
  Receive Date: 20091229
  Receipt Date: 20091218
  Transmission Date: 20100525
  Serious: Yes (Other)
  Sender: FDA-Public Use
  Company Number: JP-PFIZER INC-2009314691

PATIENT

DRUGS (2)
  1. GABAPEN [Suspect]
     Indication: HYPOAESTHESIA
     Dosage: UNK
     Route: 048
  2. VINORELBINE [Concomitant]
     Dosage: UNK

REACTIONS (2)
  - COLOUR BLINDNESS [None]
  - DIPLOPIA [None]
